FAERS Safety Report 6418386-5 (Version None)
Quarter: 2009Q4

REPORT INFORMATION
  Report Type: 
  Country: None (occurrence: None)
  Receive Date: 20091021
  Receipt Date: 20090630
  Transmission Date: 20100525
  Serious: No
  Sender: FDA-Public Use
  Company Number: ALL1-2009-1795

PATIENT
  Sex: Female

DRUGS (2)
  1. VYVANSE [Suspect]
     Indication: FIBROMYALGIA
     Dosage: MG, 1X/DAY;QD (1/2 OF CONTENTS OF CAPSULE), ORAL
     Route: 048
     Dates: start: 20090629, end: 20090630
  2. VYVANSE [Suspect]
     Indication: WEIGHT LOSS DIET
     Dosage: MG, 1X/DAY;QD (1/2 OF CONTENTS OF CAPSULE), ORAL
     Route: 048
     Dates: start: 20090629, end: 20090630

REACTIONS (6)
  - DRUG PRESCRIBING ERROR [None]
  - INSOMNIA [None]
  - MIGRAINE [None]
  - OFF LABEL USE [None]
  - PALPITATIONS [None]
  - TRISMUS [None]
